FAERS Safety Report 23600492 (Version 2)
Quarter: 2024Q1

REPORT INFORMATION
  Report Type: Spontaneous
  Country: US (occurrence: US)
  Receive Date: 20240306
  Receipt Date: 20240307
  Transmission Date: 20240409
  Serious: Yes (Disabling, Other)
  Sender: FDA-Public Use
  Company Number: US-REGENERON PHARMACEUTICALS, INC.-2024-033090

PATIENT
  Sex: Male

DRUGS (3)
  1. EYLEA HD [Suspect]
     Active Substance: AFLIBERCEPT
     Indication: Neovascular age-related macular degeneration
     Dosage: 8 MG (0.01CC), Q4 WEEKS, LEFT EYE, FORMULATION: HD
     Dates: start: 20231025, end: 20231025
  2. EYLEA HD [Suspect]
     Active Substance: AFLIBERCEPT
     Dosage: 8 MG (0.01CC), Q4 WEEKS, LEFT EYE, FORMULATION: HD
     Dates: start: 20231122, end: 20231122
  3. EYLEA HD [Suspect]
     Active Substance: AFLIBERCEPT
     Dosage: 8 MG (0.01CC), Q4 WEEKS, LEFT EYE, FORMULATION: HD
     Dates: start: 20231220, end: 20231220

REACTIONS (3)
  - Blindness unilateral [Not Recovered/Not Resolved]
  - Retinal haemorrhage [Not Recovered/Not Resolved]
  - Drug ineffective [Unknown]

NARRATIVE: CASE EVENT DATE: 20240211
